FAERS Safety Report 13238937 (Version 1)
Quarter: 2017Q1

REPORT INFORMATION
  Report Type: Spontaneous
  Country: US (occurrence: US)
  Receive Date: 20170216
  Receipt Date: 20170216
  Transmission Date: 20170428
  Serious: Yes (Death, Hospitalization)
  Sender: FDA-Public Use
  Company Number: US-STRIDES ARCOLAB LIMITED-2016SP019625

PATIENT

DRUGS (4)
  1. METHYLPREDNISOLONE. [Suspect]
     Active Substance: METHYLPREDNISOLONE
     Indication: RENAL TRANSPLANT
     Dosage: 2 G, UNK
     Route: 042
  2. TACROLIMUS. [Suspect]
     Active Substance: TACROLIMUS
     Dosage: UNK
     Route: 048
  3. TACROLIMUS. [Suspect]
     Active Substance: TACROLIMUS
     Indication: RENAL TRANSPLANT
     Dosage: UNK
     Route: 042
  4. METHYLPREDNISOLONE. [Suspect]
     Active Substance: METHYLPREDNISOLONE
     Dosage: UNK
     Route: 048

REACTIONS (8)
  - Candida infection [Recovered/Resolved]
  - Abdominal infection [Recovered/Resolved]
  - Enterococcal bacteraemia [Recovered/Resolved]
  - Intra-abdominal haematoma [Recovered/Resolved]
  - Pneumonia pseudomonal [Fatal]
  - Enterococcal infection [Recovered/Resolved]
  - Systemic bacterial infection [Fatal]
  - Citrobacter infection [Fatal]
